FAERS Safety Report 21253730 (Version 3)
Quarter: 2022Q4

REPORT INFORMATION
  Report Type: Report from Study
  Country: US (occurrence: US)
  Receive Date: 20220825
  Receipt Date: 20221018
  Transmission Date: 20230113
  Serious: Yes (Hospitalization, Other)
  Sender: FDA-Public Use
  Company Number: US-GILEAD-2022-0594965

PATIENT
  Age: 70 Year
  Sex: Female

DRUGS (2)
  1. AMBRISENTAN [Suspect]
     Active Substance: AMBRISENTAN
     Indication: Pulmonary arterial hypertension
     Dosage: 10 MG, QD
     Route: 065
     Dates: start: 20220428
  2. XARELTO [Concomitant]
     Active Substance: RIVAROXABAN

REACTIONS (10)
  - Pneumonia [Unknown]
  - Chills [Unknown]
  - Pyrexia [Unknown]
  - Oxygen saturation decreased [Unknown]
  - Pneumonia aspiration [Unknown]
  - Dyspnoea [Unknown]
  - Asthma [Unknown]
  - Hypersensitivity [Unknown]
  - Oedema [Unknown]
  - Lymphoedema [Unknown]

NARRATIVE: CASE EVENT DATE: 20220801
